FAERS Safety Report 20585999 (Version 1)
Quarter: 2022Q1

REPORT INFORMATION
  Report Type: Report from Study
  Country: IE (occurrence: IE)
  Receive Date: 20220313
  Receipt Date: 20220313
  Transmission Date: 20220423
  Serious: No
  Sender: FDA-Public Use
  Company Number: IE-JNJFOC-20220252103

PATIENT

DRUGS (2)
  1. STELARA [Suspect]
     Active Substance: USTEKINUMAB
     Indication: Psoriasis
     Dosage: ADMINISTERED ON 22-FEB-2022.?STRENGTH: 90.00 MG/ML
     Route: 058
     Dates: start: 20170912
  2. STELARA [Suspect]
     Active Substance: USTEKINUMAB

REACTIONS (1)
  - Device deployment issue [Unknown]

NARRATIVE: CASE EVENT DATE: 20220101
